FAERS Safety Report 8268583-1 (Version None)
Quarter: 2012Q2

REPORT INFORMATION
  Report Type: 
  Country: None (occurrence: None)
  Receive Date: 20120409
  Receipt Date: 20120330
  Transmission Date: 20120825
  Serious: Yes (Other)
  Sender: FDA-Public Use
  Company Number: US-ASTRAZENECA-2012SE20096

PATIENT
  Age: 41 Year
  Sex: Female

DRUGS (2)
  1. NEXIUM [Suspect]
     Route: 048
  2. ANTI INFLAMMATORY LACED WITH NEXIUM [Suspect]
     Route: 065

REACTIONS (5)
  - ULCER HAEMORRHAGE [None]
  - GASTRIC DISORDER [None]
  - INTENTIONAL DRUG MISUSE [None]
  - PAIN [None]
  - LIMB DISCOMFORT [None]
